FAERS Safety Report 11399467 (Version 1)
Quarter: 2015Q3

REPORT INFORMATION
  Report Type: Spontaneous
  Country: US (occurrence: US)
  Receive Date: 20150820
  Receipt Date: 20150820
  Transmission Date: 20151125
  Serious: No
  Sender: FDA-Public Use
  Company Number: US-GALDERMA-US14002534

PATIENT
  Age: 27 Year
  Sex: Female
  Weight: 58 kg

DRUGS (2)
  1. AVEENO MOISTURIZER WITH SPF [Concomitant]
     Indication: DRY SKIN PROPHYLAXIS
     Route: 061
  2. PLIAGLIS [Suspect]
     Active Substance: LIDOCAINE\TETRACAINE
     Indication: PREOPERATIVE CARE
     Dosage: 7%/7%
     Route: 061
     Dates: start: 20140703, end: 20140703

REACTIONS (1)
  - Skin swelling [Recovered/Resolved]

NARRATIVE: CASE EVENT DATE: 20140703
